FAERS Safety Report 4719113-X (Version None)
Quarter: 2005Q3

REPORT INFORMATION
  Report Type: 
  Country: None (occurrence: None)
  Receive Date: 20050720
  Receipt Date: 20050630
  Transmission Date: 20060218
  Serious: Yes (Hospitalization, Other)
  Sender: FDA-Public Use
  Company Number: L05-JPN-02129-01

PATIENT
  Age: 17 Year
  Sex: Male

DRUGS (1)
  1. CARBAMAZEPINE [Suspect]
     Indication: COMPLEX PARTIAL SEIZURES
     Dosage: 400 MG QD PO
     Route: 048

REACTIONS (9)
  - ARRHYTHMIA [None]
  - ATRIOVENTRICULAR BLOCK COMPLETE [None]
  - BRADYCARDIA [None]
  - BUNDLE BRANCH BLOCK LEFT [None]
  - CARDIAC FUNCTION DISTURBANCE POSTOPERATIVE [None]
  - CARDIOMEGALY [None]
  - GRAND MAL CONVULSION [None]
  - MITRAL VALVE INCOMPETENCE [None]
  - QRS AXIS ABNORMAL [None]
